FAERS Safety Report 6692304-7 (Version None)
Quarter: 2010Q2

REPORT INFORMATION
  Report Type: 
  Country: None (occurrence: None)
  Receive Date: 20100422
  Receipt Date: 20100413
  Transmission Date: 20101027
  Serious: Yes (Hospitalization)
  Sender: FDA-Public Use
  Company Number: FR-ASTRAZENECA-2010SE16438

PATIENT
  Age: 85 Year
  Sex: Male

DRUGS (9)
  1. NEXIUM [Suspect]
     Route: 048
     Dates: start: 20100101, end: 20100219
  2. ALLOPURINOL [Suspect]
     Indication: PROPHYLAXIS
     Route: 048
     Dates: start: 20100101, end: 20100212
  3. ALFUZOSIN HCL [Suspect]
     Route: 048
     Dates: start: 20100101, end: 20100212
  4. MIRCERA [Suspect]
     Dosage: 100 UG/ML
     Route: 058
     Dates: start: 20100101, end: 20100219
  5. SYMBICORT [Concomitant]
     Dosage: 320/9 UG PER DOSE
     Route: 055
  6. CALCIDIA [Concomitant]
  7. LASIX [Concomitant]
  8. SPIRIVA [Concomitant]
  9. KAYEXALATE [Concomitant]

REACTIONS (3)
  - DRUG RASH WITH EOSINOPHILIA AND SYSTEMIC SYMPTOMS [None]
  - EPIDERMAL NECROSIS [None]
  - LICHENOID KERATOSIS [None]
